FAERS Safety Report 6466648-8 (Version None)
Quarter: 2009Q4

REPORT INFORMATION
  Report Type: 
  Country: None (occurrence: None)
  Receive Date: 20091202
  Receipt Date: 20091123
  Transmission Date: 20100525
  Serious: Yes (Hospitalization)
  Sender: FDA-Public Use
  Company Number: IT-PFIZER INC-2009301817

PATIENT
  Age: 76 Year
  Sex: Female

DRUGS (2)
  1. SUTENT [Suspect]
     Indication: RENAL CELL CARCINOMA
     Dosage: 50 MG, 1X/DAY
     Route: 048
     Dates: start: 20081016, end: 20090129
  2. ACENOCOUMAROL [Concomitant]
     Indication: PULMONARY EMBOLISM
     Dosage: 1 UNIT DOSE
     Dates: start: 20080805, end: 20090129

REACTIONS (2)
  - GASTRIC ULCER [None]
  - HAEMATEMESIS [None]
